FAERS Safety Report 6814048-0 (Version None)
Quarter: 2010Q3

REPORT INFORMATION
  Report Type: 
  Country: None (occurrence: None)
  Receive Date: 20100702
  Receipt Date: 20100701
  Transmission Date: 20110219
  Serious: Yes (Death, Other)
  Sender: FDA-Public Use
  Company Number: US-ASTRAZENECA-2007UW21503

PATIENT
  Age: 672 Month
  Sex: Male
  Weight: 90.7 kg

DRUGS (16)
  1. SEROQUEL [Suspect]
     Indication: DEPRESSION
     Dosage: 100 MG TO 200 MG
     Route: 048
     Dates: start: 20031003, end: 20040404
  2. SEROQUEL [Suspect]
     Indication: INSOMNIA
     Dosage: 100 MG TO 200 MG
     Route: 048
     Dates: start: 20031003, end: 20040404
  3. SEROQUEL [Suspect]
     Dosage: 100-200 MG
     Route: 048
     Dates: start: 20031201
  4. SEROQUEL [Suspect]
     Dosage: 100-200 MG
     Route: 048
     Dates: start: 20031201
  5. SEROQUEL [Suspect]
     Dosage: 100 MG TO 200 MG
     Route: 048
     Dates: start: 20060601, end: 20061001
  6. SEROQUEL [Suspect]
     Dosage: 100 MG TO 200 MG
     Route: 048
     Dates: start: 20060601, end: 20061001
  7. SEROQUEL [Suspect]
     Route: 048
     Dates: start: 20060621
  8. SEROQUEL [Suspect]
     Route: 048
     Dates: start: 20060621
  9. SEROQUEL [Suspect]
     Dosage: 100-200 MG
     Route: 048
     Dates: start: 20060601, end: 20061001
  10. SEROQUEL [Suspect]
     Dosage: 100-200 MG
     Route: 048
     Dates: start: 20060601, end: 20061001
  11. SEROQUEL [Suspect]
     Dosage: 100-200 MG
     Route: 048
     Dates: start: 20040401
  12. SEROQUEL [Suspect]
     Dosage: 100-200 MG
     Route: 048
     Dates: start: 20040401
  13. ZOLOFT [Concomitant]
     Route: 048
     Dates: start: 20060522
  14. PAROXETINE [Concomitant]
     Route: 048
     Dates: start: 20060621
  15. WELLBUTRIN SR [Concomitant]
     Route: 048
     Dates: start: 20060710
  16. METOPROLOL TARTRATE [Concomitant]
     Route: 048
     Dates: start: 20060710

REACTIONS (7)
  - BREAST DISORDER [None]
  - CHEST PAIN [None]
  - CORONARY ARTERY DISEASE [None]
  - DEATH [None]
  - HYPERGLYCAEMIA [None]
  - INTERVERTEBRAL DISC DEGENERATION [None]
  - TYPE 2 DIABETES MELLITUS [None]
